FAERS Safety Report 14826713 (Version 1)
Quarter: 2018Q2

REPORT INFORMATION
  Report Type: Spontaneous
  Country: US (occurrence: US)
  Receive Date: 20180405
  Receipt Date: 20180405
  Transmission Date: 20180711
  Serious: No
  Sender: FDA-Public Use
  Company Number: None

PATIENT
  Age: 81 Year
  Sex: Female

DRUGS (8)
  1. ASPIRIN 81MG [Concomitant]
     Active Substance: ASPIRIN
  2. DYMISTA 137-50 [Concomitant]
  3. ADVAIR HFA [Concomitant]
     Active Substance: FLUTICASONE PROPIONATE\SALMETEROL XINAFOATE
  4. ZOFRAN [Concomitant]
     Active Substance: ONDANSETRON HYDROCHLORIDE
  5. LEXAPRO [Concomitant]
     Active Substance: ESCITALOPRAM OXALATE
  6. TRAMADOL. [Concomitant]
     Active Substance: TRAMADOL
  7. AFINITOR [Suspect]
     Active Substance: EVEROLIMUS
     Indication: NEUROENDOCRINE TUMOUR
     Route: 048
     Dates: start: 20170901, end: 20180326
  8. AVAPRO [Concomitant]
     Active Substance: IRBESARTAN

REACTIONS (2)
  - Back pain [None]
  - Pain in extremity [None]

NARRATIVE: CASE EVENT DATE: 20180326
